FAERS Safety Report 12337835 (Version 1)
Quarter: 2016Q2

REPORT INFORMATION
  Report Type: Spontaneous
  Country: GR (occurrence: GR)
  Receive Date: 20160505
  Receipt Date: 20160505
  Transmission Date: 20160815
  Serious: Yes (Hospitalization)
  Sender: FDA-Public Use
  Company Number: GR-VALIDUS PHARMACEUTICALS LLC-GR-2016VAL001454

PATIENT
  Age: 79 Year
  Sex: Male

DRUGS (3)
  1. SODIUM CHLORIDE. [Suspect]
     Active Substance: SODIUM CHLORIDE
     Indication: FLUID REPLACEMENT
     Dosage: UNK, DAILY
  2. POTASSIUM CHLORIDE. [Suspect]
     Active Substance: POTASSIUM CHLORIDE
     Indication: FLUID REPLACEMENT
     Dosage: UNK, DAILY
  3. FUROSEMIDE. [Suspect]
     Active Substance: FUROSEMIDE
     Indication: HYPERNATRAEMIA
     Dosage: 20 MG, BID
     Route: 042

REACTIONS (5)
  - Urine potassium increased [Recovering/Resolving]
  - Urine osmolarity increased [Recovering/Resolving]
  - Hypernatraemia [Recovering/Resolving]
  - Urine output decreased [Recovering/Resolving]
  - Hypervolaemia [Recovering/Resolving]
